FAERS Safety Report 9474994 (Version 1)
Quarter: 2013Q3

REPORT INFORMATION
  Report Type: Spontaneous
  Country: FI (occurrence: FI)
  Receive Date: 20130824
  Receipt Date: 20130824
  Transmission Date: 20140515
  Serious: Yes (Death)
  Sender: FDA-Public Use
  Company Number: FI-ROCHE-1264476

PATIENT
  Age: 70 Year
  Sex: 0

DRUGS (10)
  1. RITUXIMAB [Suspect]
     Indication: CENTRAL NERVOUS SYSTEM LYMPHOMA
     Route: 065
  2. METHOTREXATE [Suspect]
     Indication: CENTRAL NERVOUS SYSTEM LYMPHOMA
     Route: 065
  3. CARBOPLATIN [Suspect]
     Indication: CENTRAL NERVOUS SYSTEM LYMPHOMA
     Route: 013
  4. DIAZEPAM [Concomitant]
     Route: 065
  5. HYDROCORTISONE [Concomitant]
     Route: 065
  6. PHENOBARBITAL [Concomitant]
     Route: 042
  7. MANNITOL [Concomitant]
     Route: 013
  8. PROPOFOL [Concomitant]
     Indication: ANAESTHESIA
     Route: 065
  9. THIOPENTAL [Concomitant]
     Route: 065
  10. ATROPINE [Concomitant]
     Route: 065

REACTIONS (1)
  - Central nervous system lymphoma [Fatal]
